FAERS Safety Report 5027836-0 (Version None)
Quarter: 2006Q2

REPORT INFORMATION
  Report Type: 
  Country: None (occurrence: None)
  Receive Date: 20060612
  Receipt Date: 20060602
  Transmission Date: 20061013
  Serious: Yes (Life-Threatening)
  Sender: FDA-Public Use
  Company Number: 146052USA

PATIENT
  Age: 45 Year
  Sex: Male

DRUGS (4)
  1. PIMOZIDE [Suspect]
     Dosage: 4 MILLIGRAM ORAL
     Route: 048
     Dates: end: 20050201
  2. RISPERIDONE [Suspect]
     Dosage: 37 MILLIGRAM INTRAMUSCULAR
     Route: 030
     Dates: end: 20050201
  3. LEVOMEPROMAZINE [Suspect]
     Dosage: 50 MILLIGRAM ORAL
     Route: 048
     Dates: start: 20050108
  4. FLUOXETINE HYDROCHLORIDE [Suspect]
     Dosage: 20 MILLIGRAM ORAL
     Route: 048
     Dates: end: 20050201

REACTIONS (2)
  - HYPERKINESIA [None]
  - INSOMNIA [None]
